FAERS Safety Report 20227837 (Version 5)
Quarter: 2023Q4

REPORT INFORMATION
  Report Type: Other
  Country: US (occurrence: None)
  Receive Date: 20211224
  Receipt Date: 20231005
  Transmission Date: 20240110
  Serious: Yes (Life-Threatening, Hospitalization, Other)
  Sender: FDA-Public Use
  Company Number: US-ROCHE-2982289

PATIENT
  Age: 6 Year
  Sex: Female
  Weight: 10 kg

DRUGS (2)
  1. EVRYSDI [Suspect]
     Active Substance: RISDIPLAM
     Indication: Spinal muscular atrophy
     Dosage: STRENGTH: 0.75 MG/ML
     Route: 048
     Dates: start: 20201112
  2. EVRYSDI [Suspect]
     Active Substance: RISDIPLAM
     Dosage: STRENGTH: 0.75 MG/ML
     Route: 048
     Dates: start: 20201112

REACTIONS (14)
  - Diarrhoea [Not Recovered/Not Resolved]
  - Dehydration [Not Recovered/Not Resolved]
  - Urinary tract infection [Unknown]
  - Viral upper respiratory tract infection [Not Recovered/Not Resolved]
  - Ileus [Not Recovered/Not Resolved]
  - Vomiting [Recovering/Resolving]
  - Pancreatitis [Not Recovered/Not Resolved]
  - Haematochezia [Recovering/Resolving]
  - Blood glucose decreased [Unknown]
  - Stoma site haemorrhage [Recovering/Resolving]
  - Gastritis [Unknown]
  - Gastric ulcer [Unknown]
  - Abdominal pain upper [Unknown]
  - Clostridium difficile infection [Unknown]

NARRATIVE: CASE EVENT DATE: 20230729
